FAERS Safety Report 20642996 (Version 1)
Quarter: 2022Q1

REPORT INFORMATION
  Report Type: Spontaneous
  Country: US (occurrence: None)
  Receive Date: 20220325
  Receipt Date: 20220325
  Transmission Date: 20220423
  Serious: Yes (Disabling)
  Sender: FDA-Public Use
  Company Number: None

PATIENT
  Age: 47 Year
  Sex: Male
  Weight: 72 kg

DRUGS (7)
  1. TEPEZZA [Suspect]
     Active Substance: TEPROTUMUMAB-TRBW
     Indication: Endocrine ophthalmopathy
     Route: 042
     Dates: start: 20220225, end: 20220319
  2. METHIMAZOLE [Concomitant]
     Active Substance: METHIMAZOLE
  3. ROSUVASTATIN [Concomitant]
     Active Substance: ROSUVASTATIN
  4. EZETIMIBE [Concomitant]
     Active Substance: EZETIMIBE
  5. OMEGA-3-ACID ETHYL ESTERS [Concomitant]
     Active Substance: OMEGA-3-ACID ETHYL ESTERS
  6. AMLODIPINE [Concomitant]
     Active Substance: AMLODIPINE BESYLATE
  7. METOPROLOL SUCCINATE [Concomitant]
     Active Substance: METOPROLOL SUCCINATE

REACTIONS (4)
  - Hyperglycaemia [None]
  - Drug ineffective [None]
  - Endocrine ophthalmopathy [None]
  - Condition aggravated [None]

NARRATIVE: CASE EVENT DATE: 20220301
